FAERS Safety Report 4437061-X (Version None)
Quarter: 2004Q3

REPORT INFORMATION
  Report Type: 
  Country: None (occurrence: None)
  Receive Date: 20040830
  Receipt Date: 20040810
  Transmission Date: 20050211
  Serious: Yes (Other)
  Sender: FDA-Public Use
  Company Number: IE-GLAXOSMITHKLINE-B0342421A

PATIENT
  Age: 31 Year
  Sex: Female

DRUGS (3)
  1. SEROXAT [Suspect]
     Indication: ANXIETY
     Route: 048
     Dates: start: 20020710, end: 20030425
  2. DIANETTE [Concomitant]
     Indication: CONTRACEPTION
     Dates: start: 20010322
  3. STILNOCT [Concomitant]
     Indication: INSOMNIA
     Dates: start: 20030310, end: 20030328

REACTIONS (10)
  - ANXIETY [None]
  - CONFUSIONAL STATE [None]
  - DISORIENTATION [None]
  - DIZZINESS [None]
  - DRUG DEPENDENCE [None]
  - DRUG WITHDRAWAL SYNDROME [None]
  - HYPERHIDROSIS [None]
  - LOSS OF CONSCIOUSNESS [None]
  - NAUSEA [None]
  - VOMITING [None]
